FAERS Safety Report 5484202-1 (Version None)
Quarter: 2007Q4

REPORT INFORMATION
  Report Type: 
  Country: None (occurrence: None)
  Receive Date: 20071009
  Receipt Date: 20071009
  Transmission Date: 20080405
  Serious: Yes (Life-Threatening)
  Sender: FDA-Public Use
  Company Number: None

PATIENT
  Age: 46 Year
  Sex: Female
  Weight: 81.6475 kg

DRUGS (2)
  1. ZITHROMAX [Suspect]
     Indication: EAR INFECTION
     Dosage: 6 TABS ONE DAILY PO
     Route: 048
     Dates: start: 20071008, end: 20071008
  2. ZITHROMAX [Suspect]
     Indication: PHARYNGITIS
     Dosage: 6 TABS ONE DAILY PO
     Route: 048
     Dates: start: 20071008, end: 20071008

REACTIONS (4)
  - MALAISE [None]
  - PHARMACEUTICAL PRODUCT COMPLAINT [None]
  - PHARMACEUTICAL PRODUCT COUNTERFEIT [None]
  - THERAPEUTIC RESPONSE UNEXPECTED WITH DRUG SUBSTITUTION [None]
